FAERS Safety Report 11864603 (Version 1)
Quarter: 2015Q4

REPORT INFORMATION
  Report Type: Spontaneous
  Country: ES (occurrence: ES)
  Receive Date: 20151223
  Receipt Date: 20151223
  Transmission Date: 20160305
  Serious: Yes (Hospitalization, Other)
  Sender: FDA-Public Use
  Company Number: ES-BAXALTA-2015BLT003287

PATIENT
  Sex: Male

DRUGS (8)
  1. FEIBA [Suspect]
     Active Substance: ANTI-INHIBITOR COAGULANT COMPLEX
     Indication: PROPHYLAXIS
  2. REFACTO [Concomitant]
     Active Substance: ANTIHEMOPHILIC FACTOR, HUMAN RECOMBINANT RESIDUES 743-1636 DELETED
     Indication: IMMUNE TOLERANCE INDUCTION
     Dosage: UNK
     Route: 065
  3. NOVOSEVEN [Concomitant]
     Active Substance: COAGULATION FACTOR VIIA RECOMBINANT HUMAN
     Indication: HAEMORRHAGE PROPHYLAXIS
  4. NOVOSEVEN [Concomitant]
     Active Substance: COAGULATION FACTOR VIIA RECOMBINANT HUMAN
     Indication: HAEMOPHILIA A WITH ANTI FACTOR VIII
     Route: 065
  5. REFACTO [Concomitant]
     Active Substance: ANTIHEMOPHILIC FACTOR, HUMAN RECOMBINANT RESIDUES 743-1636 DELETED
     Indication: HAEMOPHILIA A WITH ANTI FACTOR VIII
     Dosage: 200 IU/KG/DAY
     Route: 065
  6. FEIBA [Suspect]
     Active Substance: ANTI-INHIBITOR COAGULANT COMPLEX
     Indication: HAEMOPHILIA A WITH ANTI FACTOR VIII
     Dosage: 50 IU/KG/DAY
     Route: 065
  7. KOGENATE [Concomitant]
     Active Substance: ANTIHEMOPHILIC FACTOR, HUMAN RECOMBINANT
     Indication: FACTOR VIII DEFICIENCY
     Dosage: PAST THERAPY
     Route: 065
  8. FANDHI [Concomitant]
     Indication: HAEMOPHILIA A WITH ANTI FACTOR VIII
     Dosage: PAST THERAPY, 200 IU/KG/DAY
     Route: 065

REACTIONS (10)
  - Post procedural haematoma [Unknown]
  - Device related infection [Unknown]
  - Mouth haemorrhage [Unknown]
  - Staphylococcal infection [Unknown]
  - Post procedural haemorrhage [Recovered/Resolved]
  - Bronchospasm [Unknown]
  - Respiratory tract infection [Unknown]
  - Epistaxis [Unknown]
  - Muscle haemorrhage [Unknown]
  - Drug effect incomplete [Unknown]
